FAERS Safety Report 9820135 (Version 1)
Quarter: 2014Q1

REPORT INFORMATION
  Report Type: Spontaneous
  Country: US (occurrence: None)
  Receive Date: 20140113
  Receipt Date: 20140113
  Transmission Date: 20141002
  Serious: No
  Sender: FDA-Public Use
  Company Number: None

PATIENT
  Age: 41 Year
  Sex: Female
  Weight: 72.58 kg

DRUGS (2)
  1. PRESTIQ [Suspect]
     Indication: AGITATION
     Route: 048
     Dates: start: 20140108
  2. PRESTIQ [Suspect]
     Route: 048
     Dates: start: 20140108

REACTIONS (12)
  - Drug withdrawal syndrome [None]
  - Dizziness [None]
  - Paraesthesia [None]
  - Crying [None]
  - Disturbance in attention [None]
  - Anxiety [None]
  - Therapy cessation [None]
  - Feeling abnormal [None]
  - Emotional disorder [None]
  - Impaired work ability [None]
  - Nausea [None]
  - Hot flush [None]
